FAERS Safety Report 9275065 (Version 2)
Quarter: 2013Q2

REPORT INFORMATION
  Report Type: Spontaneous
  Country: US (occurrence: US)
  Receive Date: 20130507
  Receipt Date: 20130517
  Transmission Date: 20140414
  Serious: Yes (Other)
  Sender: FDA-Public Use
  Company Number: PHEH2013US009900

PATIENT
  Sex: Female

DRUGS (2)
  1. DIOVAN [Suspect]
     Dosage: 180 MG, UNK
  2. DIOVAN [Suspect]
     Dosage: 320 MG, UNK

REACTIONS (2)
  - Retinal haemorrhage [Unknown]
  - Hypotension [Unknown]
